FAERS Safety Report 8024077-X (Version None)
Quarter: 2012Q1

REPORT INFORMATION
  Report Type: 
  Country: None (occurrence: None)
  Receive Date: 20120105
  Receipt Date: 20111227
  Transmission Date: 20120608
  Serious: Yes (Disabling)
  Sender: FDA-Public Use
  Company Number: MX-JNJFOC-20120100127

PATIENT
  Age: 9 Year
  Sex: Female
  Weight: 27 kg

DRUGS (1)
  1. TOPAMAX [Suspect]
     Indication: PRODUCT USED FOR UNKNOWN INDICATION
     Route: 048
     Dates: start: 20111216, end: 20111223

REACTIONS (5)
  - AMNESIA [None]
  - RESTLESSNESS [None]
  - BLINDNESS [None]
  - PSYCHOMOTOR SKILLS IMPAIRED [None]
  - SOMNOLENCE [None]
